FAERS Safety Report 4849950-2 (Version None)
Quarter: 2005Q4

REPORT INFORMATION
  Report Type: 
  Country: None (occurrence: None)
  Receive Date: 20051101
  Receipt Date: 20050617
  Transmission Date: 20060501
  Serious: Yes (Hospitalization)
  Sender: FDA-Public Use
  Company Number: 200511481BBE

PATIENT
  Age: 35 Year
  Sex: Male
  Weight: 112.0385 kg

DRUGS (1)
  1. GAMUNEX [Suspect]
     Indication: RENAL TRANSPLANT
     Dosage: 140 G, TOTAL DAILY, INTRAVENOUS
     Route: 042
     Dates: start: 20050601

REACTIONS (2)
  - ASTHENIA [None]
  - HAEMOLYSIS [None]
